FAERS Safety Report 9034351 (Version 1)
Quarter: 2013Q1

REPORT INFORMATION
  Report Type: Spontaneous
  Country: BR (occurrence: BR)
  Receive Date: 20130128
  Receipt Date: 20130128
  Transmission Date: 20140127
  Serious: Yes (Other)
  Sender: FDA-Public Use
  Company Number: BR-AMGEN-BRACT2012075056

PATIENT
  Age: 32 Year
  Sex: Female
  Weight: 57 kg

DRUGS (5)
  1. ENBREL [Suspect]
     Indication: RHEUMATOID ARTHRITIS
     Dosage: 50 MG, QWK
     Dates: start: 20110424
  2. ENBREL [Suspect]
     Dosage: 50 MG, QWK
     Route: 058
     Dates: start: 201205
  3. PREDNISONE [Concomitant]
     Dosage: 10 MG, 1X/DAY
  4. CHLOROTHIAZIDE [Concomitant]
     Dosage: 50 MG, 1X/DAY
  5. AEROLIN [Concomitant]
     Dosage: UNKNOWN DOSE 4 IN 4 HOURS

REACTIONS (7)
  - Rheumatoid arthritis [Unknown]
  - Drug ineffective [Unknown]
  - Dry mouth [Unknown]
  - Cough [Unknown]
  - Injection site erythema [Unknown]
  - Injection site swelling [Unknown]
  - Injection site hypersensitivity [Unknown]
